FAERS Safety Report 8152173-5 (Version None)
Quarter: 2012Q1

REPORT INFORMATION
  Report Type: 
  Country: None (occurrence: None)
  Receive Date: 20120221
  Receipt Date: 20120216
  Transmission Date: 20120608
  Serious: Yes (Other)
  Sender: FDA-Public Use
  Company Number: PE-PFIZER INC-2012042359

PATIENT

DRUGS (1)
  1. UNASYN [Suspect]
     Route: 042

REACTIONS (1)
  - HYPERTHERMIA MALIGNANT [None]
